FAERS Safety Report 8163209 (Version 3)
Quarter: 2012Q4

REPORT INFORMATION
  Report Type: 
  Country: US (occurrence: US)
  Receive Date: 20110930
  Receipt Date: 20120921
  Transmission Date: 20130627
  Serious: Yes (Hospitalization, Other)
  Sender: FDA-Public Use
  Company Number: US-US-EMD SERONO, INC.-7085130

PATIENT
  Age: 64 Year
  Sex: Female

DRUGS (2)
  1. REBIF [Suspect]
     Indication: PRODUCT USED FOR UNKNOWN INDICATION
     Route: 058
     Dates: start: 20040923
  2. AMPYRA [Concomitant]
     Indication: PRODUCT USED FOR UNKNOWN INDICATION
     Dates: start: 201102

REACTIONS (6)
  - Ankle fracture [Recovering/Resolving]
  - Limb injury [Recovering/Resolving]
  - Rotator cuff syndrome [Not Recovered/Not Resolved]
  - Muscular weakness [Unknown]
  - Injection site pain [Unknown]
  - Injection site erythema [Unknown]
